FAERS Safety Report 6250340-9 (Version None)
Quarter: 2009Q2

REPORT INFORMATION
  Report Type: 
  Country: None (occurrence: None)
  Receive Date: 20090626
  Receipt Date: 20090626
  Transmission Date: 20091009
  Serious: Yes (Disabling)
  Sender: FDA-Public Use
  Company Number: None

PATIENT
  Age: 62 Year
  Sex: Female
  Weight: 76.2043 kg

DRUGS (1)
  1. ZICAM NASAL GEL SWABS [Suspect]
     Indication: NASOPHARYNGITIS
     Dosage: AS INSTRUCTED ON PACKAGE
     Dates: start: 20081001

REACTIONS (1)
  - DEAFNESS [None]
